FAERS Safety Report 5274102-4 (Version None)
Quarter: 2007Q1

REPORT INFORMATION
  Report Type: 
  Country: None (occurrence: None)
  Receive Date: 20070323
  Receipt Date: 20070312
  Transmission Date: 20070707
  Serious: Yes (Other)
  Sender: FDA-Public Use
  Company Number: PHBS2007BR04496

PATIENT
  Age: 48 Year
  Sex: Female
  Weight: 68 kg

DRUGS (1)
  1. FORASEQ [Suspect]
     Indication: ASTHMA
     Dosage: UNK, QID

REACTIONS (7)
  - ABDOMINAL DISTENSION [None]
  - BONE PAIN [None]
  - EXOSTOSIS [None]
  - GAIT DISTURBANCE [None]
  - HEPATIC STEATOSIS [None]
  - HEPATOMEGALY [None]
  - OSTEOARTHRITIS [None]
